FAERS Safety Report 4436425-8 (Version None)
Quarter: 2004Q3

REPORT INFORMATION
  Report Type: 
  Country: None (occurrence: None)
  Receive Date: 20040830
  Receipt Date: 20040510
  Transmission Date: 20050211
  Serious: Yes (Disabling)
  Sender: FDA-Public Use
  Company Number: US-BRISTOL-MYERS SQUIBB COMPANY-12583514

PATIENT
  Age: 38 Year
  Sex: Male
  Weight: 81 kg

DRUGS (4)
  1. ABILIFY [Suspect]
     Indication: DELUSIONAL DISORDER, PERSECUTORY TYPE
     Route: 048
     Dates: start: 20040510
  2. PAXIL CR [Concomitant]
  3. TARKA [Concomitant]
  4. DOSTINEX [Concomitant]

REACTIONS (2)
  - FEELING HOT [None]
  - MUSCLE CRAMP [None]
